FAERS Safety Report 6566552-0 (Version None)
Quarter: 2010Q1

REPORT INFORMATION
  Report Type: 
  Country: None (occurrence: None)
  Receive Date: 20100127
  Receipt Date: 20100115
  Transmission Date: 20100710
  Serious: Yes (Other)
  Sender: FDA-Public Use
  Company Number: 230157K09CAN

PATIENT
  Sex: Female

DRUGS (5)
  1. REBIF [Suspect]
     Indication: MULTIPLE SCLEROSIS
     Dosage: 44 MCG, 3 IN 1 WEEKS; 22 MCG, 3 IN 1 WEEKS; 33 MCG; 44 MCG
     Dates: start: 20090112, end: 20090401
  2. REBIF [Suspect]
     Indication: MULTIPLE SCLEROSIS
     Dosage: 44 MCG, 3 IN 1 WEEKS; 22 MCG, 3 IN 1 WEEKS; 33 MCG; 44 MCG
     Dates: start: 20090401, end: 20091201
  3. REBIF [Suspect]
     Indication: MULTIPLE SCLEROSIS
     Dosage: 44 MCG, 3 IN 1 WEEKS; 22 MCG, 3 IN 1 WEEKS; 33 MCG; 44 MCG
  4. REBIF [Suspect]
     Indication: MULTIPLE SCLEROSIS
     Dosage: 44 MCG, 3 IN 1 WEEKS; 22 MCG, 3 IN 1 WEEKS; 33 MCG; 44 MCG
     Dates: start: 20091201
  5. ADVIL [Concomitant]

REACTIONS (9)
  - ARTHRITIS [None]
  - CONDITION AGGRAVATED [None]
  - CONTUSION [None]
  - ERYTHEMA [None]
  - INFLUENZA LIKE ILLNESS [None]
  - MULTIPLE SCLEROSIS [None]
  - MYALGIA [None]
  - OPTIC NEURITIS [None]
  - WRONG TECHNIQUE IN DRUG USAGE PROCESS [None]
